FAERS Safety Report 12850867 (Version 1)
Quarter: 2016Q4

REPORT INFORMATION
  Report Type: Other
  Country: GB (occurrence: IT)
  Receive Date: 20161014
  Receipt Date: 20161014
  Transmission Date: 20170207
  Serious: Yes (Hospitalization)
  Sender: FDA-Public Use
  Company Number: IT-INTERNATIONAL MEDICATION SYSTEMS, LIMITED-1058392

PATIENT
  Age: 76 Year
  Sex: Male

DRUGS (10)
  1. BACITRACIN, NEOMYCIN SULFATE [Interacting]
     Active Substance: BACITRACIN\NEOMYCIN SULFATE
  2. HEPARIN [Interacting]
     Active Substance: HEPARIN SODIUM
     Route: 058
  3. ACETYLSALICYLIC ACID [Interacting]
     Active Substance: ASPIRIN
  4. GLYCERYL TRINITRATE [Concomitant]
     Active Substance: NITROGLYCERIN
  5. RAMIPRIL. [Concomitant]
     Active Substance: RAMIPRIL
  6. SPIRONOLACTONE. [Concomitant]
     Active Substance: SPIRONOLACTONE
  7. WARFARIN SODIUM. [Interacting]
     Active Substance: WARFARIN SODIUM
  8. PANTOPRAZOLE SODIUM. [Concomitant]
     Active Substance: PANTOPRAZOLE SODIUM
  9. AMIODARONE [Suspect]
     Active Substance: AMIODARONE
     Indication: ATRIAL FIBRILLATION
  10. LORAZEPAM. [Concomitant]
     Active Substance: LORAZEPAM

REACTIONS (3)
  - International normalised ratio increased [Recovered/Resolved]
  - Prescribed overdose [None]
  - Drug interaction [Recovered/Resolved]
